FAERS Safety Report 6523471-3 (Version None)
Quarter: 2009Q4

REPORT INFORMATION
  Report Type: 
  Country: None (occurrence: None)
  Receive Date: 20091231
  Receipt Date: 20091217
  Transmission Date: 20100525
  Serious: Yes (Hospitalization, Other)
  Sender: FDA-Public Use
  Company Number: PHEH2008US05043

PATIENT
  Sex: Female
  Weight: 86.621 kg

DRUGS (17)
  1. ZELNORM [Suspect]
     Indication: CONSTIPATION
     Dosage: UNK
     Dates: start: 20020901
  2. ACETYLSALICYLIC ACID [Concomitant]
     Dosage: 81 MG
  3. PLAVIX [Concomitant]
  4. LIPITOR [Concomitant]
  5. ALTACE [Concomitant]
  6. LEVOXYL [Concomitant]
  7. WARFARIN SODIUM [Concomitant]
  8. LURIDE [Concomitant]
  9. PAXIL [Concomitant]
  10. PAROXETINE [Concomitant]
  11. FENTANYL-100 [Concomitant]
  12. VERSED [Concomitant]
  13. CLARITIN [Concomitant]
  14. METFORMIN [Concomitant]
  15. ESTRADIOL [Concomitant]
  16. BYETTA [Concomitant]
  17. TOPAMAX [Concomitant]

REACTIONS (26)
  - ABSCESS [None]
  - ACNE [None]
  - AMNESIA [None]
  - ANXIETY [None]
  - ASTHENIA [None]
  - BLINDNESS UNILATERAL [None]
  - CARDIAC ANEURYSM REPAIR [None]
  - CEREBRAL INFARCTION [None]
  - CEREBROVASCULAR ACCIDENT [None]
  - COGNITIVE DISORDER [None]
  - DEPRESSION [None]
  - DIABETES MELLITUS [None]
  - DIPLOPIA [None]
  - DIZZINESS [None]
  - DRUG INEFFECTIVE [None]
  - HALLUCINATION, VISUAL [None]
  - HEMIANOPIA HOMONYMOUS [None]
  - MEDICAL DEVICE IMPLANTATION [None]
  - MIGRAINE WITHOUT AURA [None]
  - NAUSEA [None]
  - PHONOPHOBIA [None]
  - PHOTOPHOBIA [None]
  - STRESS [None]
  - VERTIGO [None]
  - VISUAL IMPAIRMENT [None]
  - VOMITING [None]
